FAERS Safety Report 23041851 (Version 2)
Quarter: 2023Q4

REPORT INFORMATION
  Report Type: Report from Study
  Country: AR (occurrence: AR)
  Receive Date: 20231007
  Receipt Date: 20231029
  Transmission Date: 20240109
  Serious: Yes (Life-Threatening)
  Sender: FDA-Public Use
  Company Number: AR-002147023-NVSC2023AR216189

PATIENT
  Age: 71 Year
  Sex: Female

DRUGS (1)
  1. COSENTYX [Suspect]
     Active Substance: SECUKINUMAB
     Indication: Psoriasis
     Dosage: 300 MG, QW
     Route: 065
     Dates: start: 20231003

REACTIONS (7)
  - Blood glucose decreased [Unknown]
  - Hyperhidrosis [Unknown]
  - Dizziness [Unknown]
  - Hypertension [Unknown]
  - Intraocular pressure test abnormal [Unknown]
  - Ocular hyperaemia [Unknown]
  - Psoriasis [Unknown]

NARRATIVE: CASE EVENT DATE: 20231003
